FAERS Safety Report 8829739 (Version 2)
Quarter: 2013Q3

REPORT INFORMATION
  Report Type: Spontaneous
  Country: US (occurrence: US)
  Receive Date: 20121008
  Receipt Date: 20130905
  Transmission Date: 20140515
  Serious: No
  Sender: FDA-Public Use
  Company Number: US-ASTRAZENECA-2012SE74427

PATIENT
  Age: 66 Year
  Sex: Female
  Weight: 72.6 kg

DRUGS (10)
  1. NEXIUM [Suspect]
     Indication: GASTROOESOPHAGEAL REFLUX DISEASE
     Route: 048
     Dates: start: 2008, end: 20130715
  2. NEXIUM [Suspect]
     Indication: DYSPEPSIA
     Route: 048
     Dates: start: 2008, end: 20130715
  3. LORAZEPAM [Concomitant]
     Indication: ANXIETY
  4. TRAZODONE [Concomitant]
     Indication: SLEEP DISORDER
  5. ATORVASTATIN [Concomitant]
     Indication: BLOOD CHOLESTEROL
  6. SERTRALINE [Concomitant]
     Indication: DEPRESSION
  7. SERTRALINE [Concomitant]
     Indication: ANXIETY
  8. MVI [Concomitant]
     Indication: SUPPLEMENTATION THERAPY
  9. FISH OIL [Concomitant]
     Indication: ILL-DEFINED DISORDER
  10. VITAMIN D [Concomitant]
     Indication: SUPPLEMENTATION THERAPY

REACTIONS (6)
  - Tearfulness [Unknown]
  - Eating disorder [Not Recovered/Not Resolved]
  - Foreign body [Not Recovered/Not Resolved]
  - Malaise [Unknown]
  - Nausea [Unknown]
  - Drug dose omission [Not Recovered/Not Resolved]
